FAERS Safety Report 14423584 (Version 1)
Quarter: 2018Q1

REPORT INFORMATION
  Report Type: Spontaneous
  Country: US (occurrence: US)
  Receive Date: 20180123
  Receipt Date: 20180123
  Transmission Date: 20180509
  Serious: No
  Sender: FDA-Public Use
  Company Number: US-PFIZER INC-2018027871

PATIENT
  Age: 60 Year
  Sex: Female

DRUGS (1)
  1. EFFEXOR XR [Suspect]
     Active Substance: VENLAFAXINE HYDROCHLORIDE
     Dosage: 300 MG, 2X/DAY [150MG MORNING 150 AT NIGHT]
     Route: 048

REACTIONS (4)
  - Heart rate increased [Unknown]
  - Hyperhidrosis [Unknown]
  - Hypertension [Unknown]
  - Fatigue [Unknown]
